FAERS Safety Report 11340334 (Version 1)
Quarter: 2015Q3

REPORT INFORMATION
  Report Type: Spontaneous
  Country: JP (occurrence: JP)
  Receive Date: 20150805
  Receipt Date: 20150805
  Transmission Date: 20151125
  Serious: Yes (Other)
  Sender: FDA-Public Use
  Company Number: JP-UCBSA-2015021815

PATIENT
  Age: 89 Year
  Sex: Female

DRUGS (1)
  1. NEUPRO [Suspect]
     Active Substance: ROTIGOTINE
     Indication: PARKINSON^S DISEASE
     Dosage: 2MG/24HR
     Route: 062

REACTIONS (4)
  - Melaena [Unknown]
  - Loss of consciousness [Recovered/Resolved]
  - Colitis ischaemic [Unknown]
  - Anaemia [Unknown]

NARRATIVE: CASE EVENT DATE: 20150619
